FAERS Safety Report 6284712-3 (Version None)
Quarter: 2009Q3

REPORT INFORMATION
  Report Type: 
  Country: None (occurrence: None)
  Receive Date: 20090727
  Receipt Date: 20090715
  Transmission Date: 20100115
  Serious: Yes (Hospitalization, Other)
  Sender: FDA-Public Use
  Company Number: US-ELI_LILLY_AND_COMPANY-US200906002893

PATIENT
  Age: 39 Year
  Sex: Female
  Weight: 100.68 kg

DRUGS (2)
  1. STRATTERA [Suspect]
     Indication: ATTENTION DEFICIT/HYPERACTIVITY DISORDER
     Dosage: 40 MG, UNKNOWN
     Route: 065
     Dates: start: 20090305
  2. STRATTERA [Suspect]
     Dosage: 60 MG, UNKNOWN
     Route: 065
     Dates: start: 20090605, end: 20090605

REACTIONS (3)
  - GALLBLADDER OPERATION [None]
  - HEPATIC ENZYME INCREASED [None]
  - HEPATITIS [None]
